FAERS Safety Report 10083586 (Version 1)
Quarter: 2014Q2

REPORT INFORMATION
  Report Type: Spontaneous
  Country: US (occurrence: US)
  Receive Date: 20140417
  Receipt Date: 20140417
  Transmission Date: 20141212
  Serious: Yes (Hospitalization, Other)
  Sender: FDA-Public Use
  Company Number: US-ROCHE-1380499

PATIENT
  Age: 62 Year
  Sex: Female

DRUGS (1)
  1. RITUXAN [Suspect]
     Indication: SPLENIC MARGINAL ZONE LYMPHOMA
     Route: 065
     Dates: start: 20140226, end: 20140226

REACTIONS (4)
  - Pyrexia [Unknown]
  - Erythema [Unknown]
  - Infection [Unknown]
  - Haemolytic uraemic syndrome [Unknown]
